FAERS Safety Report 23575702 (Version 1)
Quarter: 2024Q1

REPORT INFORMATION
  Report Type: Spontaneous
  Country: ES (occurrence: ES)
  Receive Date: 20240228
  Receipt Date: 20240228
  Transmission Date: 20240410
  Serious: Yes (Death, Congenital Anomaly)
  Sender: FDA-Public Use
  Company Number: ES-BIOGEN-2024BI01252449

PATIENT

DRUGS (1)
  1. VUMERITY [Suspect]
     Active Substance: DIROXIMEL FUMARATE
     Indication: Maternal exposure timing unspecified
     Route: 050
     Dates: start: 20230802

REACTIONS (2)
  - Foetal malformation [Fatal]
  - Foetal exposure during pregnancy [Unknown]
